FAERS Safety Report 7004083-4 (Version None)
Quarter: 2010Q3

REPORT INFORMATION
  Report Type: 
  Country: None (occurrence: None)
  Receive Date: 20100920
  Receipt Date: 20100107
  Transmission Date: 20110219
  Serious: No
  Sender: FDA-Public Use
  Company Number: US-WYE-H12939010

PATIENT
  Sex: Female

DRUGS (2)
  1. PRISTIQ [Suspect]
     Indication: DEPRESSION
     Route: 048
     Dates: start: 20090910, end: 20090901
  2. PRISTIQ [Suspect]
     Route: 048
     Dates: start: 20090901, end: 20090915

REACTIONS (2)
  - ABNORMAL SENSATION IN EYE [None]
  - VISUAL IMPAIRMENT [None]
